FAERS Safety Report 18447273 (Version 1)
Quarter: 2020Q4

REPORT INFORMATION
  Report Type: Spontaneous
  Country: US (occurrence: US)
  Receive Date: 20201030
  Receipt Date: 20201030
  Transmission Date: 20210114
  Serious: Yes (Other)
  Sender: FDA-Public Use
  Company Number: None

PATIENT
  Age: 23 Year
  Sex: Male
  Weight: 76 kg

DRUGS (3)
  1. LACOSAMIDE. [Concomitant]
     Active Substance: LACOSAMIDE
     Dates: start: 20201025, end: 20201027
  2. LORAZEPAM. [Concomitant]
     Active Substance: LORAZEPAM
     Dates: start: 20201025, end: 20201027
  3. KEPPRA [Suspect]
     Active Substance: LEVETIRACETAM
     Indication: SEIZURE
     Dates: start: 20201025, end: 20201027

REACTIONS (2)
  - Hostility [None]
  - Aggression [None]

NARRATIVE: CASE EVENT DATE: 20201026
